FAERS Safety Report 11110116 (Version 2)
Quarter: 2015Q2

REPORT INFORMATION
  Report Type: Spontaneous
  Country: AT (occurrence: AT)
  Receive Date: 20150513
  Receipt Date: 20150602
  Transmission Date: 20150821
  Serious: Yes (Hospitalization)
  Sender: FDA-Public Use
  Company Number: AT-TEVA-561623ISR

PATIENT
  Age: 53 Year
  Sex: Female

DRUGS (11)
  1. PANTOPRAZOLE [Concomitant]
     Active Substance: PANTOPRAZOLE SODIUM
     Dosage: 40 MILLIGRAM DAILY;
     Route: 065
  2. NICORANDIL [Concomitant]
     Active Substance: NICORANDIL
     Dosage: 10 MILLIGRAM DAILY;
     Route: 065
  3. VITAMIN B COMPLEX [Concomitant]
     Active Substance: CYANOCOBALAMIN\DEXPANTHENOL\NIACINAMIDE\PYRIDOXINE HYDROCHLORIDE\RIBOFLAVIN 5^-PHOSPHATE SODIUM\THIAMINE HYDROCHLORIDE\VITAMIN B COMPLEX
     Route: 065
  4. TIZANIDINE (TIZANIDINE) [Interacting]
     Active Substance: TIZANIDINE
     Indication: INTERVERTEBRAL DISC PROTRUSION
     Dosage: 30-40 TABLETS AT 2 MG/DAY FOR 2 YEARS
     Route: 065
  5. TIZANIDINE (TIZANIDINE) [Interacting]
     Active Substance: TIZANIDINE
     Indication: INTERVERTEBRAL DISC PROTRUSION
     Dosage: 80 MG/DAY, REDUCED SUBSEQUENTLY
     Route: 065
  6. BISOPROLOL [Suspect]
     Active Substance: BISOPROLOL
     Indication: HYPERTENSION
     Route: 065
  7. LORAZEPAM. [Concomitant]
     Active Substance: LORAZEPAM
     Indication: DRUG WITHDRAWAL SYNDROME
     Route: 042
  8. OXAZEPAM. [Concomitant]
     Active Substance: OXAZEPAM
     Indication: DRUG WITHDRAWAL SYNDROME
     Route: 048
  9. MAGNESIUM [Concomitant]
     Active Substance: MAGNESIUM
     Dosage: 600 MILLIGRAM DAILY;
     Route: 065
  10. TIZANIDINE (TIZANIDINE) [Interacting]
     Active Substance: TIZANIDINE
     Indication: INTERVERTEBRAL DISC PROTRUSION
     Dosage: 60MG DAILY (TILL DAY PRIOR ADMISSION)
     Route: 065
  11. ASPIRIN. [Concomitant]
     Active Substance: ASPIRIN
     Dosage: 100 MILLIGRAM DAILY;
     Route: 065

REACTIONS (13)
  - Delirium [Recovered/Resolved]
  - Tremor [Recovered/Resolved]
  - Tachycardia [Recovered/Resolved]
  - Drug withdrawal syndrome [Recovered/Resolved]
  - Hypotension [Recovered/Resolved]
  - Bradycardia [Recovered/Resolved]
  - Nausea [Recovered/Resolved]
  - Vomiting [Recovered/Resolved]
  - Drug interaction [Recovered/Resolved]
  - Overdose [Recovered/Resolved]
  - Cold sweat [Recovered/Resolved]
  - Hypertension [Recovered/Resolved]
  - Agitation [Recovered/Resolved]
